FAERS Safety Report 11501122 (Version 1)
Quarter: 2015Q3

REPORT INFORMATION
  Report Type: Spontaneous
  Country: US (occurrence: US)
  Receive Date: 20150903
  Receipt Date: 20150903
  Transmission Date: 20151125
  Serious: No
  Sender: FDA-Public Use
  Company Number: US-ELI_LILLY_AND_COMPANY-US200907002966

PATIENT
  Age: 54 Year
  Sex: Female

DRUGS (7)
  1. HUMALOG MIX75/25 [Suspect]
     Active Substance: INSULIN LISPRO
     Dosage: 46 U, UNK
     Dates: start: 20090713
  2. METOPROLOL [Concomitant]
     Active Substance: METOPROLOL
     Dosage: UNK, 2/D
  3. HUMALOG MIX75/25 [Suspect]
     Active Substance: INSULIN LISPRO
     Dosage: 40 U, UNK
     Dates: start: 20090706
  4. LEVEMIR [Concomitant]
     Active Substance: INSULIN DETEMIR
     Dosage: 180 U, DAILY (1/D)
     Dates: end: 20090706
  5. OXYGEN. [Concomitant]
     Active Substance: OXYGEN
  6. TRIAMTERENE AND HYDROCHLOROTHIAZIDE [Concomitant]
     Active Substance: HYDROCHLOROTHIAZIDE\TRIAMTERENE
  7. ESTROGEL [Concomitant]
     Active Substance: ESTRADIOL

REACTIONS (5)
  - Dyspnoea [Recovering/Resolving]
  - Blood glucose increased [Not Recovered/Not Resolved]
  - Hypersensitivity [Recovering/Resolving]
  - Gait disturbance [Unknown]
  - Incorrect dose administered [Not Recovered/Not Resolved]

NARRATIVE: CASE EVENT DATE: 20090706
